FAERS Safety Report 8061598 (Version 2)
Quarter: 2012Q4

REPORT INFORMATION
  Report Type: 
  Country: US (occurrence: US)
  Receive Date: 20110729
  Receipt Date: 20121217
  Transmission Date: 20130627
  Serious: Yes (Other)
  Sender: FDA-Public Use
  Company Number: US-ROCHE-772969

PATIENT
  Age: 40 None
  Sex: Male
  Weight: 62.6 kg

DRUGS (1)
  1. ACCUTANE [Suspect]
     Indication: ACNE CYSTIC
     Route: 065
     Dates: start: 1983, end: 1986

REACTIONS (10)
  - Crohn^s disease [Unknown]
  - Colitis ulcerative [Unknown]
  - Coombs positive haemolytic anaemia [Unknown]
  - Proctitis [Unknown]
  - Neuropathy peripheral [Unknown]
  - Gastrooesophageal reflux disease [Unknown]
  - Inflammatory bowel disease [Unknown]
  - Intestinal obstruction [Unknown]
  - Depression [Unknown]
  - Suicidal ideation [Unknown]
